FAERS Safety Report 14303103 (Version 3)
Quarter: 2018Q1

REPORT INFORMATION
  Report Type: Spontaneous
  Country: NL (occurrence: NL)
  Receive Date: 20171219
  Receipt Date: 20180313
  Transmission Date: 20180509
  Serious: Yes (Hospitalization, Other)
  Sender: FDA-Public Use
  Company Number: NL-RARE DISEASE THERAPEUTICS, INC.-2037414

PATIENT
  Age: 51 Year
  Sex: Male
  Weight: 86 kg

DRUGS (5)
  1. SALOFALK [Suspect]
     Active Substance: MESALAMINE
     Route: 048
  2. ALLOPURINOL. [Suspect]
     Active Substance: ALLOPURINOL
     Route: 065
  3. PURIXAN [Suspect]
     Active Substance: MERCAPTOPURINE
     Indication: COLITIS ULCERATIVE
     Route: 065
  4. MESALAZINE [Suspect]
     Active Substance: MESALAMINE
     Route: 065
  5. MERCAPTOPURINE. [Suspect]
     Active Substance: MERCAPTOPURINE
     Route: 065

REACTIONS (6)
  - Colitis ulcerative [Unknown]
  - Anaemia [Recovered/Resolved]
  - Leukopenia [Recovered/Resolved]
  - Pyrexia [Unknown]
  - Bone marrow failure [Unknown]
  - Off label use [Unknown]
